FAERS Safety Report 10165203 (Version 1)
Quarter: 2014Q2

REPORT INFORMATION
  Report Type: Spontaneous
  Country: US (occurrence: US)
  Receive Date: 20140510
  Receipt Date: 20140510
  Transmission Date: 20141212
  Serious: No
  Sender: FDA-Public Use
  Company Number: US-BRISTOL-MYERS SQUIBB COMPANY-19764976

PATIENT
  Age: 74 Year
  Sex: Female
  Weight: 95.69 kg

DRUGS (3)
  1. BYDUREON [Suspect]
     Indication: TYPE 2 DIABETES MELLITUS
     Dates: start: 201305
  2. METFORMIN [Concomitant]
  3. PLAVIX [Concomitant]

REACTIONS (5)
  - Injection site extravasation [Unknown]
  - Injection site bruising [Unknown]
  - Weight decreased [Unknown]
  - Constipation [Unknown]
  - Drug ineffective [Unknown]
